FAERS Safety Report 23585044 (Version 1)
Quarter: 2024Q1

REPORT INFORMATION
  Report Type: Spontaneous
  Country: US (occurrence: US)
  Receive Date: 20240301
  Receipt Date: 20240301
  Transmission Date: 20240410
  Serious: No
  Sender: FDA-Public Use
  Company Number: US-APOTEX-2024AP001366

PATIENT
  Sex: Female

DRUGS (1)
  1. IPRATROPIUM BROMIDE [Suspect]
     Active Substance: IPRATROPIUM BROMIDE\IPRATROPIUM BROMIDE ANHYDROUS
     Indication: Rhinitis
     Dosage: 4 DOSAGE FORM, QD
     Route: 045

REACTIONS (4)
  - Extra dose administered [Unknown]
  - Incorrect dose administered by device [Unknown]
  - Device issue [Unknown]
  - Product delivery mechanism issue [Unknown]
